FAERS Safety Report 25041847 (Version 1)
Quarter: 2025Q1

REPORT INFORMATION
  Report Type: Spontaneous
  Country: NL (occurrence: NL)
  Receive Date: 20250305
  Receipt Date: 20250305
  Transmission Date: 20250409
  Serious: Yes (Hospitalization)
  Sender: NOVARTIS
  Company Number: None

PATIENT
  Age: 77 Year
  Sex: Male
  Weight: 72.1 kg

DRUGS (1)
  1. SACUBITRIL\VALSARTAN [Suspect]
     Active Substance: SACUBITRIL\VALSARTAN
     Indication: Heart failure with reduced ejection fraction
     Dosage: 1 DOSAGE FORM, QD, (1X PER DAG 1 STUK)
     Route: 048
     Dates: start: 20240525

REACTIONS (1)
  - Hyponatraemia [Recovering/Resolving]
